FAERS Safety Report 22064550 (Version 1)
Quarter: 2023Q1

REPORT INFORMATION
  Report Type: Spontaneous
  Country: US (occurrence: None)
  Receive Date: 20230305
  Receipt Date: 20230305
  Transmission Date: 20230417
  Serious: Yes (Other)
  Sender: FDA-Public Use
  Company Number: None

PATIENT
  Age: 65 Year
  Sex: Female
  Weight: 66.6 kg

DRUGS (10)
  1. FLOVENT [Suspect]
     Active Substance: FLUTICASONE PROPIONATE
     Indication: Cough
     Dosage: FREQUENCY : TWICE A DAY;?
     Route: 055
     Dates: end: 20230304
  2. FLOVENT [Suspect]
     Active Substance: FLUTICASONE PROPIONATE
     Indication: Cough
     Dosage: FREQUENCY : TWICE A DAY;?
     Route: 055
  3. HYDROXYZINE [Concomitant]
     Active Substance: HYDROXYZINE HYDROCHLORIDE
  4. BENZONATATE [Concomitant]
     Active Substance: BENZONATATE
  5. BUPROPION [Concomitant]
     Active Substance: BUPROPION
  6. VENLAFAXINE [Concomitant]
     Active Substance: VENLAFAXINE HYDROCHLORIDE
  7. Gas Rellief [Concomitant]
  8. CHARCOAL [Concomitant]
     Active Substance: ACTIVATED CHARCOAL
  9. TYLENOL [Concomitant]
     Active Substance: ACETAMINOPHEN
  10. Vicks [Concomitant]

REACTIONS (4)
  - Cough [None]
  - Incontinence [None]
  - Therapy non-responder [None]
  - Dyspnoea [None]

NARRATIVE: CASE EVENT DATE: 20230227
